FAERS Safety Report 16149398 (Version 1)
Quarter: 2019Q2

REPORT INFORMATION
  Report Type: Spontaneous
  Country: DE (occurrence: DE)
  Receive Date: 20190402
  Receipt Date: 20190402
  Transmission Date: 20190711
  Serious: Yes (Other)
  Sender: FDA-Public Use
  Company Number: DE-MYLANLABS-2019M1028533

PATIENT
  Sex: Female

DRUGS (12)
  1. EUTHYROX N [Suspect]
     Active Substance: LEVOTHYROXINE SODIUM
     Dosage: 88 MICROGRAM
  2. EUTHYROX N [Suspect]
     Active Substance: LEVOTHYROXINE SODIUM
     Dosage: 18.5 MICROGRAM
  3. HEPARIN [Suspect]
     Active Substance: HEPARIN SODIUM
     Indication: PRODUCT USED FOR UNKNOWN INDICATION
     Dosage: UNK
  4. EUTHYROX N [Suspect]
     Active Substance: LEVOTHYROXINE SODIUM
     Dosage: 12 MICROGRAM
  5. EUTHYROX N [Suspect]
     Active Substance: LEVOTHYROXINE SODIUM
     Dosage: 56.25 MICROGRAM
  6. EUTHYROX N [Suspect]
     Active Substance: LEVOTHYROXINE SODIUM
     Indication: THYROID DISORDER
     Dosage: 44 MICROGRAM
  7. EUTHYROX N [Suspect]
     Active Substance: LEVOTHYROXINE SODIUM
     Dosage: 75 MICROGRAM
  8. EUTHYROX N [Suspect]
     Active Substance: LEVOTHYROXINE SODIUM
     Dosage: 50 MICROGRAM
  9. EUTHYROX N [Suspect]
     Active Substance: LEVOTHYROXINE SODIUM
     Dosage: 9.88 MICROGRAM
  10. EUTHYROX N [Suspect]
     Active Substance: LEVOTHYROXINE SODIUM
     Dosage: 9 MICROGRAM
  11. EUTHYROX N [Suspect]
     Active Substance: LEVOTHYROXINE SODIUM
     Dosage: 15.5 MICROGRAM
  12. EUTHYROX N [Suspect]
     Active Substance: LEVOTHYROXINE SODIUM
     Dosage: 6 MICROGRAM

REACTIONS (24)
  - Fall [Unknown]
  - Sleep disorder [Not Recovered/Not Resolved]
  - Asthenia [Unknown]
  - Dry skin [Unknown]
  - Nervous system disorder [Recovering/Resolving]
  - Tremor [Unknown]
  - Cardiac discomfort [Recovering/Resolving]
  - Confusional state [Unknown]
  - Thyroid function test abnormal [Unknown]
  - Post-traumatic neck syndrome [Unknown]
  - Panic attack [Recovering/Resolving]
  - Anxiety [Unknown]
  - Overdose [Unknown]
  - Depression [Unknown]
  - Heparin-induced thrombocytopenia [Unknown]
  - Heart rate increased [Recovering/Resolving]
  - Night sweats [Not Recovered/Not Resolved]
  - Mucosal disorder [Recovering/Resolving]
  - Adrenal disorder [Unknown]
  - Restlessness [Not Recovered/Not Resolved]
  - Drug intolerance [Unknown]
  - Nervousness [Recovering/Resolving]
  - Skin induration [Unknown]
  - Histamine intolerance [Unknown]

NARRATIVE: CASE EVENT DATE: 201807
